FAERS Safety Report 13329490 (Version 1)
Quarter: 2017Q1

REPORT INFORMATION
  Report Type: Spontaneous
  Country: FR (occurrence: FR)
  Receive Date: 20170313
  Receipt Date: 20170313
  Transmission Date: 20170428
  Serious: Yes (Hospitalization)
  Sender: FDA-Public Use
  Company Number: FR-JNJFOC-20170302115

PATIENT
  Age: 69 Year
  Sex: Female

DRUGS (8)
  1. RISPERDAL [Suspect]
     Active Substance: RISPERIDONE
     Indication: PSYCHOTIC DISORDER
     Dosage: DOSE REDUCED
     Route: 048
     Dates: start: 20170210
  2. TANGANIL [Concomitant]
     Active Substance: ACETYLLEUCINE
     Route: 065
  3. RISPERDAL [Suspect]
     Active Substance: RISPERIDONE
     Indication: PSYCHOTIC DISORDER
     Route: 048
     Dates: end: 20170204
  4. PROZAC [Concomitant]
     Active Substance: FLUOXETINE HYDROCHLORIDE
     Route: 065
  5. CELECTOL [Suspect]
     Active Substance: CELIPROLOL HYDROCHLORIDE
     Indication: HYPERTENSION
     Route: 048
     Dates: end: 20170204
  6. ALPRAZOLAM. [Suspect]
     Active Substance: ALPRAZOLAM
     Indication: PSYCHOTIC DISORDER
     Route: 048
     Dates: end: 20170204
  7. COAPROVEL [Concomitant]
     Active Substance: HYDROCHLOROTHIAZIDE\IRBESARTAN
     Dosage: 300/ 12.5 MG
     Route: 065
  8. LEVOTHYROX [Concomitant]
     Active Substance: LEVOTHYROXINE
     Route: 065

REACTIONS (15)
  - Extrapyramidal disorder [Recovered/Resolved]
  - Atrioventricular block first degree [Unknown]
  - Syncope [Unknown]
  - Pancytopenia [Recovered/Resolved]
  - Depressed level of consciousness [Unknown]
  - Malaise [Unknown]
  - Psychomotor retardation [Unknown]
  - Hypertonia [Unknown]
  - Hypothermia [Recovered/Resolved]
  - Generalised tonic-clonic seizure [Unknown]
  - Spinal shock [Unknown]
  - Stupor [Unknown]
  - Bradycardia [Recovered/Resolved]
  - Incorrect dose administered [Unknown]
  - Off label use [Unknown]

NARRATIVE: CASE EVENT DATE: 2017
